FAERS Safety Report 23681566 (Version 2)
Quarter: 2024Q3

REPORT INFORMATION
  Report Type: Spontaneous
  Country: FR (occurrence: FR)
  Receive Date: 20240328
  Receipt Date: 20240924
  Transmission Date: 20241017
  Serious: Yes (Hospitalization, Other)
  Sender: ABBVIE
  Company Number: FR-002147023-NVSC2023FR133092

PATIENT
  Sex: Female
  Weight: 66 kg

DRUGS (7)
  1. BOTULINUM TOXIN TYPE A [Suspect]
     Active Substance: BOTULINUM TOXIN TYPE A
     Indication: Muscle spasticity
     Dosage: TIME INTERVAL: AS NECESSARY: UNK
     Route: 065
     Dates: start: 20181016, end: 20181016
  2. LIORESAL [Suspect]
     Active Substance: BACLOFEN
     Indication: Product used for unknown indication
     Dosage: 90 MG, QD (GRADUALLY INCREASED TO 90 MG PER DAY IN 3 DOSES)
     Route: 065
  3. LIORESAL [Suspect]
     Active Substance: BACLOFEN
     Indication: Product used for unknown indication
     Route: 065
  4. GILENYA [Suspect]
     Active Substance: FINGOLIMOD HYDROCHLORIDE
     Indication: Relapsing multiple sclerosis
     Dosage: UNK
     Route: 065
     Dates: start: 201804, end: 201807
  5. TYSABRI [Suspect]
     Active Substance: NATALIZUMAB
     Indication: Relapsing-remitting multiple sclerosis
     Dosage: UNK
     Route: 065
     Dates: start: 20180820
  6. TYSABRI [Suspect]
     Active Substance: NATALIZUMAB
     Indication: Relapsing-remitting multiple sclerosis
     Route: 065
     Dates: start: 201808, end: 201808
  7. ABILIFY [Concomitant]
     Active Substance: ARIPIPRAZOLE
     Indication: Psychotic disorder

REACTIONS (14)
  - Hemiparesis [Unknown]
  - Pelvic fluid collection [Unknown]
  - Motor dysfunction [Unknown]
  - Renal infarct [Unknown]
  - Pleural effusion [Unknown]
  - Escherichia test positive [Unknown]
  - Catheter site haemorrhage [Unknown]
  - Liver disorder [Unknown]
  - Nephritis [Unknown]
  - Dysarthria [Unknown]
  - Body temperature abnormal [Unknown]
  - Coma [Unknown]
  - Muscle spasticity [Unknown]
  - Haematoma muscle [Unknown]

NARRATIVE: CASE EVENT DATE: 20181017
